FAERS Safety Report 25900930 (Version 1)
Quarter: 2025Q4

REPORT INFORMATION
  Report Type: Spontaneous
  Country: US (occurrence: US)
  Receive Date: 20251009
  Receipt Date: 20251009
  Transmission Date: 20260117
  Serious: Yes (Death, Life-Threatening, Hospitalization, Other)
  Sender: IPCA
  Company Number: US-IPCA LABORATORIES LIMITED-IPC-2025-US-002680

PATIENT

DRUGS (9)
  1. ALLOPURINOL [Interacting]
     Active Substance: ALLOPURINOL
     Indication: Hyperuricaemia
     Dosage: 50 MILLIGRAM, QD
     Route: 065
  2. HYDROCHLOROTHIAZIDE [Interacting]
     Active Substance: HYDROCHLOROTHIAZIDE
     Indication: Product used for unknown indication
     Dosage: UNK
     Route: 065
  3. METOPROLOL SUCCINATE [Interacting]
     Active Substance: METOPROLOL SUCCINATE
     Indication: Product used for unknown indication
     Dosage: UNK
     Route: 065
  4. METFORMIN [Interacting]
     Active Substance: METFORMIN HYDROCHLORIDE
     Indication: Product used for unknown indication
     Dosage: UNK
     Route: 065
  5. BUPROPION HYDROCHLORIDE [Interacting]
     Active Substance: BUPROPION HYDROCHLORIDE
     Indication: Product used for unknown indication
     Dosage: UNK
     Route: 065
  6. AMLODIPINE [Interacting]
     Active Substance: AMLODIPINE BESYLATE
     Indication: Product used for unknown indication
     Dosage: UNK
     Route: 065
  7. COLCHICINE [Interacting]
     Active Substance: COLCHICINE
     Indication: Chronic kidney disease
     Dosage: UNK
     Route: 065
  8. COLCHICINE [Interacting]
     Active Substance: COLCHICINE
     Indication: Hyperuricaemia
  9. PREDNISONE [Suspect]
     Active Substance: PREDNISONE
     Indication: Gout
     Dosage: 50 MILLIGRAM, QD
     Route: 065

REACTIONS (10)
  - Acute hepatic failure [Fatal]
  - Multiple organ dysfunction syndrome [Fatal]
  - Encephalopathy [Fatal]
  - Renal failure [Fatal]
  - Respiratory distress [Fatal]
  - Dyspnoea [Fatal]
  - Condition aggravated [Fatal]
  - Drug interaction [Fatal]
  - Cough [Fatal]
  - Haemoptysis [Fatal]
